FAERS Safety Report 23761047 (Version 1)
Quarter: 2024Q2

REPORT INFORMATION
  Report Type: Spontaneous
  Country: GB (occurrence: GB)
  Receive Date: 20240419
  Receipt Date: 20240419
  Transmission Date: 20240716
  Serious: Yes (Disabling, Other)
  Sender: FDA-Public Use
  Company Number: GB-PFIZER INC-202400065435

PATIENT
  Age: 30 Year
  Sex: Female
  Weight: 55 kg

DRUGS (14)
  1. MABTHERA [Suspect]
     Active Substance: RITUXIMAB
     Indication: Follicular lymphoma
     Dosage: 1400 MG 4 WEEKLY WITH BENDAMUSTINE
     Route: 058
     Dates: start: 20231107, end: 20231107
  2. RUXIENCE [Suspect]
     Active Substance: RITUXIMAB-PVVR
     Indication: Follicular lymphoma
     Dosage: 600 MG 4 WEEKLY WITH BENDAMUSTINE
     Route: 042
     Dates: start: 20231205
  3. RUXIENCE [Suspect]
     Active Substance: RITUXIMAB-PVVR
     Dosage: INITIAL MAINTENANCE
     Route: 065
     Dates: start: 20240117
  4. RUXIENCE [Suspect]
     Active Substance: RITUXIMAB-PVVR
     Dosage: 600 MG 4 WEEKLY WITH BENDAMUSTINE
     Route: 042
     Dates: start: 20231003
  5. RUXIENCE [Suspect]
     Active Substance: RITUXIMAB-PVVR
     Dosage: 600 MG 4 WEEKLY WITH BENDAMUSTINE
     Route: 042
     Dates: start: 20231205
  6. RUXIENCE [Suspect]
     Active Substance: RITUXIMAB-PVVR
     Dosage: INITIAL MAINTENANCE
     Route: 042
     Dates: start: 20240117
  7. ACYCLOVIR [Concomitant]
     Active Substance: ACYCLOVIR
     Dosage: 400 MG, 2X/DAY CONTINUOUS - USUALLY UNTIL 6 MONTHS POST CHEMOTHERAPY
     Dates: start: 20231002
  8. BENDAMUSTINE [Concomitant]
     Active Substance: BENDAMUSTINE
     Indication: Follicular lymphoma
     Dosage: 90 MG/M2, CYCLIC =157.5MG 3 CYCLES, 4 WEEKLY (= 6 DOSES)
     Dates: start: 20231002, end: 20231205
  9. CHLORPHENIRAMINE MALEATE [Concomitant]
     Active Substance: CHLORPHENIRAMINE MALEATE
     Dosage: 10 MG GIVEN ON DAYS PATIENTS RECEIVED RITUXIMAB
     Dates: start: 20231003, end: 20231205
  10. SULFAMETHOXAZOLE\TRIMETHOPRIM [Concomitant]
     Active Substance: SULFAMETHOXAZOLE\TRIMETHOPRIM
     Dosage: 480 MG, DAILY CONTINUOUS  -USUALLY UNTIL 6 MONTHS POST CHEMOTHERAPY
     Dates: start: 20231002
  11. ONDANSETRON [Concomitant]
     Active Substance: ONDANSETRON
     Dosage: 8 MG GIVEN ON DAYS PATIENT RECEIVED CHEMOTHERAPY
     Dates: start: 20231002, end: 20231205
  12. ACETAMINOPHEN [Concomitant]
     Active Substance: ACETAMINOPHEN
     Dosage: 1000 MG GIVEN ON DAYS PATIENTS RECEIVED RITUXIMAB
     Dates: start: 20231003, end: 20231205
  13. PREDNISOLONE [Concomitant]
     Active Substance: PREDNISOLONE
     Dosage: UNK
     Dates: start: 20231002
  14. RASBURICASE [Concomitant]
     Active Substance: RASBURICASE
     Dosage: 3 MG, SINGLE
     Dates: start: 20231002

REACTIONS (14)
  - Deafness [Not Recovered/Not Resolved]
  - Pyrexia [Unknown]
  - Oedema [Unknown]
  - Face oedema [Unknown]
  - Oedema peripheral [Unknown]
  - Rash [Unknown]
  - Serum sickness [Unknown]
  - Pneumonia [Unknown]
  - Autoimmune disorder [Unknown]
  - Blood lactate dehydrogenase increased [Unknown]
  - Arthralgia [Unknown]
  - Serum ferritin increased [Unknown]
  - Normocytic anaemia [Unknown]
  - Fatigue [Unknown]

NARRATIVE: CASE EVENT DATE: 20231201
